FAERS Safety Report 10273054 (Version 1)
Quarter: 2014Q2

REPORT INFORMATION
  Report Type: Spontaneous
  Country: US (occurrence: None)
  Receive Date: 20140630
  Receipt Date: 20140630
  Transmission Date: 20141212
  Serious: No
  Sender: FDA-Public Use
  Company Number: None

PATIENT
  Age: 46 Year
  Sex: Male
  Weight: 90.72 kg

DRUGS (1)
  1. MUPIROCIN [Suspect]
     Indication: SKIN ULCER
     Dosage: AS NEEDED TWICE DAILY INTO THE NOSE
     Route: 045
     Dates: start: 20140609, end: 20140628

REACTIONS (4)
  - Product odour abnormal [None]
  - Thermal burn [None]
  - Skin ulcer [None]
  - Condition aggravated [None]
